FAERS Safety Report 11289458 (Version 1)
Quarter: 2015Q3

REPORT INFORMATION
  Report Type: Spontaneous
  Country: US (occurrence: US)
  Receive Date: 20150721
  Receipt Date: 20150721
  Transmission Date: 20151125
  Serious: No
  Sender: FDA-Public Use
  Company Number: US-GALDERMA-US14003581

PATIENT
  Age: 49 Year
  Sex: Female

DRUGS (5)
  1. ORACEA [Suspect]
     Active Substance: DOXYCYCLINE
     Dosage: 40 MG
     Route: 048
     Dates: start: 20140917, end: 20140918
  2. ALLEGRA [Concomitant]
     Active Substance: FEXOFENADINE HYDROCHLORIDE
     Indication: SEASONAL ALLERGY
     Route: 048
  3. ORACEA [Suspect]
     Active Substance: DOXYCYCLINE
     Indication: ROSACEA
     Route: 048
     Dates: start: 201409, end: 20140916
  4. MIRVASO [Concomitant]
     Active Substance: BRIMONIDINE TARTRATE
     Indication: ROSACEA
     Dosage: 0.33%
     Route: 061
     Dates: start: 20140913, end: 20140913
  5. BIRTH CONTROL PILLS [Concomitant]
     Active Substance: UNSPECIFIED INGREDIENT
     Indication: HORMONE LEVEL ABNORMAL
     Route: 048

REACTIONS (2)
  - Abdominal pain upper [Not Recovered/Not Resolved]
  - Abdominal distension [Not Recovered/Not Resolved]

NARRATIVE: CASE EVENT DATE: 20140915
